FAERS Safety Report 4500986-0 (Version None)
Quarter: 2004Q4

REPORT INFORMATION
  Report Type: 
  Country: None (occurrence: None)
  Receive Date: 20041115
  Receipt Date: 20041001
  Transmission Date: 20050328
  Serious: Yes (Life-Threatening, Hospitalization, Disabling)
  Sender: FDA-Public Use
  Company Number: US-MERCK-0410USA00174

PATIENT
  Age: 50 Year
  Sex: Female
  Weight: 65 kg

DRUGS (9)
  1. VIOXX [Suspect]
     Indication: OSTEOARTHRITIS
     Route: 048
     Dates: start: 20020101, end: 20040101
  2. VIOXX [Suspect]
     Indication: FIBROMYALGIA
     Route: 048
     Dates: start: 20020101, end: 20040101
  3. [THERAPY UNSPECIFIED] [Concomitant]
     Route: 065
  4. TORADOL [Concomitant]
     Route: 048
  5. CATAPRES [Concomitant]
     Route: 061
  6. OXYCONTIN [Concomitant]
     Route: 065
  7. RESTORIL [Concomitant]
     Route: 065
  8. VERAPAMIL [Concomitant]
     Route: 065
  9. PAXIL [Concomitant]
     Route: 065

REACTIONS (19)
  - BLOOD PRESSURE INCREASED [None]
  - BLOOD SODIUM DECREASED [None]
  - BRAIN OEDEMA [None]
  - CEREBRAL HAEMATOMA [None]
  - CEREBRAL HAEMORRHAGE [None]
  - CEREBROVASCULAR ACCIDENT [None]
  - COGNITIVE DISORDER [None]
  - DEPRESSION [None]
  - EJECTION FRACTION DECREASED [None]
  - ELECTROCARDIOGRAM T WAVE ABNORMAL [None]
  - EMBOLISM [None]
  - HAEMORRHAGIC STROKE [None]
  - MEDICATION ERROR [None]
  - MENTAL DISORDER DUE TO A GENERAL MEDICAL CONDITION [None]
  - MENTAL STATUS CHANGES [None]
  - METASTASIS [None]
  - RESPIRATORY RATE INCREASED [None]
  - SLEEP DISORDER [None]
  - SUICIDAL IDEATION [None]
